FAERS Safety Report 4517429-3 (Version None)
Quarter: 2004Q4

REPORT INFORMATION
  Report Type: 
  Country: None (occurrence: None)
  Receive Date: 20041022
  Receipt Date: 20040904
  Transmission Date: 20050328
  Serious: Yes (Other)
  Sender: FDA-Public Use
  Company Number: 2004067925

PATIENT
  Age: 32 Year
  Sex: Male

DRUGS (1)
  1. RELPAX [Suspect]
     Indication: ILL-DEFINED DISORDER

REACTIONS (2)
  - EXTRAPYRAMIDAL DISORDER [None]
  - TACHYCARDIA [None]
